FAERS Safety Report 5977182-3 (Version None)
Quarter: 2008Q4

REPORT INFORMATION
  Report Type: 
  Country: None (occurrence: None)
  Receive Date: 20081128
  Receipt Date: 20081120
  Transmission Date: 20090506
  Serious: Yes (Other)
  Sender: FDA-Public Use
  Company Number: 1000001776

PATIENT
  Age: 80 Year
  Sex: Male

DRUGS (14)
  1. NAMENDA [Suspect]
     Indication: DEMENTIA
     Dosage: 5 MG (5 MG, 1 IN 1 D), ORAL
     Route: 048
     Dates: start: 20080806, end: 20080812
  2. NAMENDA [Suspect]
     Indication: DEMENTIA
     Dosage: 10 MG (5 MG, 2 IN 1 D), ORAL
     Route: 048
     Dates: start: 20080813, end: 20080801
  3. LEVOTHYROXINE SODIUM [Concomitant]
  4. FLOMAX [Concomitant]
  5. DETROL LA [Concomitant]
  6. CLARINEX [Concomitant]
  7. PACERONE [Concomitant]
  8. LISINOPRIL [Concomitant]
  9. PLAVIX [Concomitant]
  10. TOPROL-XL [Concomitant]
  11. NITROGLYCERIN [Concomitant]
  12. FLONASE [Concomitant]
  13. LOVASTATIN [Concomitant]
  14. NEXIUM [Concomitant]

REACTIONS (2)
  - MENTAL STATUS CHANGES [None]
  - ROAD TRAFFIC ACCIDENT [None]
